FAERS Safety Report 20108316 (Version 1)
Quarter: 2021Q4

REPORT INFORMATION
  Report Type: Spontaneous
  Country: US (occurrence: US)
  Receive Date: 20211124
  Receipt Date: 20211124
  Transmission Date: 20220303
  Serious: No
  Sender: FDA-Public Use
  Company Number: US-009507513-2111USA008182

PATIENT
  Sex: Female

DRUGS (7)
  1. PRINIVIL [Suspect]
     Active Substance: LISINOPRIL
     Dosage: 20 NG DAILY
     Route: 048
  2. FISH OIL [Concomitant]
     Active Substance: FISH OIL
     Dosage: DAILY
  3. LASIX [Concomitant]
     Active Substance: FUROSEMIDE
     Dosage: 20 MG DAILY
  4. MAGNESIUM [Concomitant]
     Active Substance: MAGNESIUM
     Dosage: 250 MG DAILY
  5. VITAMINS [Concomitant]
     Active Substance: VITAMINS
     Dosage: DAILY
  6. OXYCODONE [Concomitant]
     Active Substance: OXYCODONE
     Dosage: 5 M EVERY 6 HOURS AS NEEDED
  7. ZOFRAN [Concomitant]
     Active Substance: ONDANSETRON HYDROCHLORIDE
     Dosage: 8 MG EVERY 8 HOURS AS NEEDED

REACTIONS (1)
  - Incorrect dose administered [Unknown]
